FAERS Safety Report 4543943-0 (Version None)
Quarter: 2005Q1

REPORT INFORMATION
  Report Type: 
  Country: None (occurrence: None)
  Receive Date: 20050104
  Receipt Date: 20041228
  Transmission Date: 20050727
  Serious: Yes (Life-Threatening)
  Sender: FDA-Public Use
  Company Number: JP-JNJFOC-20041105779

PATIENT
  Age: 93 Year
  Sex: Male

DRUGS (3)
  1. RISPERDAL [Suspect]
     Indication: DELIRIUM
     Route: 065
  2. SODIUM PICOSULFATE [Concomitant]
     Indication: CONSTIPATION
  3. MAGNESIUM OXIDE [Concomitant]
     Indication: CONSTIPATION

REACTIONS (1)
  - BLOOD POTASSIUM INCREASED [None]
